FAERS Safety Report 24679517 (Version 5)
Quarter: 2025Q3

REPORT INFORMATION
  Report Type: Spontaneous
  Country: US (occurrence: US)
  Receive Date: 20241129
  Receipt Date: 20250809
  Transmission Date: 20251021
  Serious: Yes (Other)
  Sender: ALEXION PHARMACEUTICALS
  Company Number: US-AstraZeneca-CH-00751606AP

PATIENT
  Age: 76 Year
  Sex: Male
  Weight: 121.09 kg

DRUGS (1)
  1. AIRSUPRA [Suspect]
     Active Substance: ALBUTEROL SULFATE\BUDESONIDE
     Route: 065

REACTIONS (9)
  - Pneumonia [Not Recovered/Not Resolved]
  - Diabetes mellitus [Unknown]
  - Hypertension [Unknown]
  - Sleep apnoea syndrome [Unknown]
  - Suspected product tampering [Unknown]
  - Device delivery system issue [Unknown]
  - Incorrect dose administered by device [Unknown]
  - Device issue [Unknown]
  - Drug dose omission by device [Unknown]

NARRATIVE: CASE EVENT DATE: 20240601
